FAERS Safety Report 7577129-2 (Version None)
Quarter: 2011Q2

REPORT INFORMATION
  Report Type: 
  Country: None (occurrence: None)
  Receive Date: 20110624
  Receipt Date: 20110624
  Transmission Date: 20111010
  Serious: Yes (Other)
  Sender: FDA-Public Use
  Company Number: None

PATIENT
  Sex: Female

DRUGS (1)
  1. RESTORIL [Suspect]
     Indication: INSOMNIA
     Dosage: 1 AS NECESSARY
     Dates: start: 20100904, end: 20100918

REACTIONS (2)
  - SOMNAMBULISM [None]
  - ROAD TRAFFIC ACCIDENT [None]
